FAERS Safety Report 4330931-2 (Version None)
Quarter: 2004Q1

REPORT INFORMATION
  Report Type: 
  Country: None (occurrence: None)
  Receive Date: 20040329
  Receipt Date: 19950407
  Transmission Date: 20041129
  Serious: Yes (Death)
  Sender: FDA-Public Use
  Company Number: WAES 95050587

PATIENT
  Age: 9 Day
  Sex: Female

DRUGS (4)
  1. INDOCIN I.V. [Suspect]
     Indication: PATENT DUCTUS ARTERIOSUS
     Dosage: 90 MICROGRM/DAILY, IV
     Route: 042
     Dates: start: 19950310, end: 19950310
  2. INDOCIN I.V. [Suspect]
     Indication: PATENT DUCTUS ARTERIOSUS
     Dosage: 90 MICROGRM/DAILY, IV
     Route: 042
     Dates: start: 19950312, end: 19950313
  3. DOBUTAMINE HCL [Concomitant]
  4. DOPAMINE HCL [Concomitant]

REACTIONS (11)
  - CONDITION AGGRAVATED [None]
  - DISSEMINATED INTRAVASCULAR COAGULATION [None]
  - DRUG INEFFECTIVE [None]
  - HYPERKALAEMIA [None]
  - HYPOGLYCAEMIA NEONATAL [None]
  - LUNG INFECTION PSEUDOMONAL [None]
  - MENINGITIS NEONATAL [None]
  - NEONATAL DISORDER [None]
  - OLIGURIA [None]
  - PSEUDOMONAL SEPSIS [None]
  - SEPTIC SHOCK [None]
